FAERS Safety Report 24743472 (Version 1)
Quarter: 2024Q4

REPORT INFORMATION
  Report Type: Spontaneous
  Country: US (occurrence: None)
  Receive Date: 20241216
  Receipt Date: 20241216
  Transmission Date: 20250115
  Serious: Yes (unspecified)
  Sender: Public
  Company Number: None

PATIENT
  Age: 65 Year
  Sex: Male
  Weight: 88 kg

DRUGS (2)
  1. CYCLOBENZAPRINE [Suspect]
     Active Substance: CYCLOBENZAPRINE
     Indication: Pain in extremity
     Dates: start: 20241123, end: 20241123
  2. CYCLOBENZAPRINE [Suspect]
     Active Substance: CYCLOBENZAPRINE
     Indication: Neck pain

REACTIONS (4)
  - Hypersensitivity [None]
  - Oropharyngeal discomfort [None]
  - Localised oedema [None]
  - Cardio-respiratory arrest [None]

NARRATIVE: CASE EVENT DATE: 20241123
